FAERS Safety Report 13821111 (Version 2)
Quarter: 2018Q3

REPORT INFORMATION
  Report Type: Spontaneous
  Country: US (occurrence: US)
  Receive Date: 20170801
  Receipt Date: 20180921
  Transmission Date: 20181010
  Serious: No
  Sender: FDA-Public Use
  Company Number: US-IGSA-GTI004793

PATIENT
  Sex: Female

DRUGS (1)
  1. GAMUNEX?C [Suspect]
     Active Substance: HUMAN IMMUNOGLOBULIN G
     Dosage: UNK
     Route: 042

REACTIONS (3)
  - Fatigue [Unknown]
  - Abdominal discomfort [Unknown]
  - Headache [Unknown]
